FAERS Safety Report 23112454 (Version 2)
Quarter: 2023Q4

REPORT INFORMATION
  Report Type: Report from Study
  Country: US (occurrence: US)
  Receive Date: 20231027
  Receipt Date: 20231030
  Transmission Date: 20240110
  Serious: No
  Sender: FDA-Public Use
  Company Number: US-002147023-NVSC2023US228275

PATIENT
  Sex: Male

DRUGS (2)
  1. ENTRESTO [Suspect]
     Active Substance: SACUBITRIL\VALSARTAN
     Indication: Blood pressure management
     Dosage: 24.26 MG, BID
     Route: 048
     Dates: start: 20220903
  2. ENTRESTO [Suspect]
     Active Substance: SACUBITRIL\VALSARTAN
     Dosage: 1/2 TABLE TWICE DAILY
     Route: 048

REACTIONS (2)
  - Feeling abnormal [Recovering/Resolving]
  - Wrong technique in product usage process [Unknown]
